FAERS Safety Report 23235393 (Version 3)
Quarter: 2024Q3

REPORT INFORMATION
  Report Type: Spontaneous
  Country: CA (occurrence: CA)
  Receive Date: 20231128
  Receipt Date: 20240717
  Transmission Date: 20241017
  Serious: Yes (Hospitalization, Other)
  Sender: PFIZER
  Company Number: CA-PFIZER INC-202201191426

PATIENT
  Age: 31 Year
  Sex: Male

DRUGS (16)
  1. RUXIENCE [Suspect]
     Active Substance: RITUXIMAB-PVVR
     Indication: Chronic inflammatory demyelinating polyradiculoneuropathy
     Dosage: 1000 MG DAY 1 AND DAY 15, THEN 1000MG EVERY 6 MONTHS
     Route: 042
     Dates: start: 20220919
  2. RUXIENCE [Suspect]
     Active Substance: RITUXIMAB-PVVR
     Indication: Rheumatoid arthritis
     Dosage: 1000 MG DAY 1 AND DAY 15, THEN 1000MG EVERY 6 MONTHS
     Route: 042
     Dates: start: 20221003
  3. RUXIENCE [Suspect]
     Active Substance: RITUXIMAB-PVVR
     Dosage: 1000 MG DAY 1 AND DAY 15, THEN 1000MG EVERY 6 MONTHS
     Route: 042
     Dates: start: 20230414
  4. AZATHIOPRINE [Concomitant]
     Active Substance: AZATHIOPRINE
     Dosage: 150 MG, DAILY
  5. ACETAMINOPHEN [Concomitant]
     Active Substance: ACETAMINOPHEN
     Indication: Premedication
     Dosage: 650 MG
     Dates: start: 20230414, end: 20230414
  6. CALCIUM CARBONATE [Concomitant]
     Active Substance: CALCIUM CARBONATE
     Dosage: 500 MG, DAILY
  7. DULOXETINE [Concomitant]
     Active Substance: DULOXETINE
     Dosage: 30 MG, DAILY
  8. GABAPENTIN [Concomitant]
     Active Substance: GABAPENTIN
     Dosage: 100 MG, 4X/DAY, (100MG 3 CAPS QID)
  9. MAGNESIUM OXIDE [Concomitant]
     Active Substance: MAGNESIUM OXIDE
     Dosage: 420 MG, DAILY
  10. METHYLPREDNISOLONE [Concomitant]
     Active Substance: METHYLPREDNISOLONE
     Indication: Premedication
     Dosage: 100 MG
     Dates: start: 20230414, end: 20230414
  11. NABILONE [Concomitant]
     Active Substance: NABILONE
     Dosage: 1 MG, 2X/DAY, (1MG 1 CAP BID)
  12. PREDNISONE [Concomitant]
     Active Substance: PREDNISONE
     Dosage: 1 DF, PREDNISONE 17.5 MG FOR DAYSGOING DOWN 2.5MG Q MONTH
  13. PANTOPRAZOLE [Concomitant]
     Active Substance: PANTOPRAZOLE
     Dosage: 40 MG, DAILY
  14. SULFAMETHOXAZOLE [Concomitant]
     Active Substance: SULFAMETHOXAZOLE
     Dosage: UNK, (SULFAMETHOXAZOLE 800 MG/ 160MG 1 TAB 3 TIMES A WEEK)
  15. CHOLECALCIFEROL [Concomitant]
     Active Substance: CHOLECALCIFEROL
     Dosage: 1000 IU, DAILY
  16. ZOFRAN [Concomitant]
     Active Substance: ONDANSETRON HYDROCHLORIDE
     Dosage: UNK, AS NEEDED

REACTIONS (7)
  - Impaired gastric emptying [Unknown]
  - Nasopharyngitis [Recovered/Resolved]
  - Loss of therapeutic response [Unknown]
  - Nausea [Recovered/Resolved]
  - Nausea [Not Recovered/Not Resolved]
  - Product use issue [Unknown]
  - Off label use [Unknown]

NARRATIVE: CASE EVENT DATE: 20221001
